FAERS Safety Report 9195327 (Version 1)
Quarter: 2013Q1

REPORT INFORMATION
  Report Type: Spontaneous
  Country: US (occurrence: US)
  Receive Date: 20130328
  Receipt Date: 20130328
  Transmission Date: 20140127
  Serious: No
  Sender: FDA-Public Use
  Company Number: US-ALLERGAN-1204289US

PATIENT
  Age: 72 Year
  Sex: Female
  Weight: 69.84 kg

DRUGS (1)
  1. LUMIGAN [Suspect]
     Indication: GLAUCOMA
     Dosage: UNK
     Route: 047
     Dates: start: 201202

REACTIONS (3)
  - Sinusitis [Unknown]
  - Hypersensitivity [Unknown]
  - Blood test abnormal [Unknown]
